FAERS Safety Report 7085170-1 (Version None)
Quarter: 2010Q4

REPORT INFORMATION
  Report Type: 
  Country: None (occurrence: None)
  Receive Date: 20101105
  Receipt Date: 20101103
  Transmission Date: 20110411
  Serious: Yes (Hospitalization)
  Sender: FDA-Public Use
  Company Number: DE-BRISTOL-MYERS SQUIBB COMPANY-15342595

PATIENT
  Age: 27 Year
  Sex: Male

DRUGS (1)
  1. ABILIFY [Suspect]
     Indication: PSYCHOTIC DISORDER
     Route: 048

REACTIONS (2)
  - CHOLECYSTITIS [None]
  - TRANSAMINASES INCREASED [None]
